FAERS Safety Report 5642135-1 (Version None)
Quarter: 2008Q1

REPORT INFORMATION
  Report Type: 
  Country: None (occurrence: None)
  Receive Date: 20080225
  Receipt Date: 20080211
  Transmission Date: 20080703
  Serious: Yes (Hospitalization)
  Sender: FDA-Public Use
  Company Number: 023684

PATIENT
  Age: 30 Year
  Sex: Male

DRUGS (1)
  1. CLARAVIS [Suspect]
     Indication: ACNE
     Dosage: 50 MG/DAY, ORAL, 45 MG/DAY, ORAL
     Route: 048

REACTIONS (5)
  - APHASIA [None]
  - CEREBRAL ISCHAEMIA [None]
  - DYSARTHRIA [None]
  - FACIAL PALSY [None]
  - HYPOAESTHESIA [None]
